FAERS Safety Report 8988276 (Version 1)
Quarter: 2012Q4

REPORT INFORMATION
  Report Type: Report from Study
  Country: US (occurrence: US)
  Receive Date: 20121227
  Receipt Date: 20121227
  Transmission Date: 20130627
  Serious: Yes (Hospitalization)
  Sender: FDA-Public Use
  Company Number: US-ASTELLAS-2012US009793

PATIENT
  Age: 67 Year
  Sex: Male
  Weight: 95 kg

DRUGS (17)
  1. BLINDED ENZALUTAMIDE [Suspect]
     Indication: PROSTATE CANCER METASTATIC
     Dosage: UNK
     Route: 048
     Dates: start: 20120403, end: 20120604
  2. BLINDED ENZALUTAMIDE [Suspect]
     Dosage: UNK
     Route: 048
     Dates: start: 20120607
  3. ASPIRIN [Concomitant]
     Indication: CARDIAC DISORDER
     Dosage: 81 mg, UID/QD
     Route: 048
     Dates: start: 1994
  4. ATENOLOL [Concomitant]
     Indication: HYPERTENSION
     Dosage: 25 mg, UID/QD
     Route: 048
     Dates: start: 1994
  5. VICODIN [Concomitant]
     Indication: BACK PAIN
     Dosage: 5/500 mg, prn
     Route: 048
     Dates: start: 2009
  6. LEXAPRO [Concomitant]
     Indication: DEPRESSION
     Dosage: 10 mg, UID/QD
     Route: 048
     Dates: start: 2002
  7. LISINOPRIL [Concomitant]
     Indication: HYPERTENSION
     Dosage: 10 mg, UID/QD
     Route: 048
     Dates: start: 1994
  8. PLAVIX [Concomitant]
     Indication: ARTERIOSCLEROSIS
     Dosage: 75 mg, UID/QD
     Route: 048
     Dates: start: 1997
  9. PRAVASTATIN [Concomitant]
     Indication: HYPERCHOLESTEROLAEMIA
     Dosage: 80 mg, UID/QD
     Route: 048
     Dates: start: 2010
  10. RANITIDINE [Concomitant]
     Indication: GASTROOESOPHAGEAL REFLUX DISEASE
     Dosage: 300 mg, prn
     Route: 048
     Dates: start: 2010
  11. XANAX [Concomitant]
     Indication: ANXIETY
     Dosage: 5 mg, Unknown/D
     Route: 048
     Dates: start: 2002
  12. NICOTINE [Concomitant]
     Indication: TOBACCO WITHDRAWAL SYMPTOMS
     Dosage: 2 mg, prn
     Route: 048
     Dates: start: 201201
  13. TRILIPIX [Concomitant]
     Indication: HYPERCHOLESTEROLAEMIA
     Dosage: 135 mg, UID/QD
     Route: 048
     Dates: start: 2011
  14. HYDROCODONE/APAP [Concomitant]
     Indication: BACK PAIN
     Dosage: 500 mg, prn
     Route: 048
     Dates: start: 2010
  15. DOCUSATE SODIUM [Concomitant]
     Indication: CONSTIPATION
     Dosage: 500 mg, prn
     Route: 048
     Dates: start: 2011
  16. BENADRYL                           /00000402/ [Concomitant]
     Indication: HYPERSENSITIVITY
     Dosage: 25 mg, prn
     Route: 048
     Dates: start: 20120324
  17. ALEVE [Concomitant]
     Indication: BACK PAIN
     Dosage: 200 mg, prn
     Route: 048
     Dates: start: 201201

REACTIONS (1)
  - Pleuritic pain [Not Recovered/Not Resolved]
